FAERS Safety Report 9723219 (Version 1)
Quarter: 2013Q4

REPORT INFORMATION
  Report Type: Spontaneous
  Country: US (occurrence: None)
  Receive Date: 20131127
  Receipt Date: 20131127
  Transmission Date: 20140711
  Serious: No
  Sender: FDA-Public Use
  Company Number: None

PATIENT
  Age: 75 Year
  Sex: Female
  Weight: 51.26 kg

DRUGS (9)
  1. DULERA [Suspect]
     Indication: ASTHMA
     Dosage: 200MCG/5MCG PERACTUATION; 1 PUFF; TWICE DAILY, MORNING + EVENING; INHALED BY MOUTH THEN MOUTH RINSED
     Route: 048
     Dates: start: 20130920, end: 20131020
  2. ALENDRONATE (FOSAMAX GENERIC) [Concomitant]
  3. CALCIUM [Concomitant]
  4. VITAMINS B, C, D, E [Concomitant]
  5. FISH OIL [Concomitant]
  6. ACIDOPHILUS [Concomitant]
  7. MAGNESIUM [Concomitant]
  8. IMODIUM [Concomitant]
  9. GAX-X [Concomitant]

REACTIONS (1)
  - Laryngitis [None]
